FAERS Safety Report 13874023 (Version 1)
Quarter: 2017Q3

REPORT INFORMATION
  Report Type: Spontaneous
  Country: US (occurrence: US)
  Receive Date: 20170816
  Receipt Date: 20170816
  Transmission Date: 20171127
  Serious: No
  Sender: FDA-Public Use
  Company Number: US-ENDO PHARMACEUTICALS INC-2016-005950

PATIENT
  Age: 63 Year
  Sex: Female
  Weight: 81.72 kg

DRUGS (5)
  1. SUMAVEL DOSEPRO [Suspect]
     Active Substance: SUMATRIPTAN SUCCINATE
     Indication: MIGRAINE
     Route: 058
  2. TOPIRAMATE. [Concomitant]
     Active Substance: TOPIRAMATE
     Indication: MIGRAINE
  3. CYCLOBENZAPRINE. [Concomitant]
     Active Substance: CYCLOBENZAPRINE
     Indication: MUSCLE RELAXANT THERAPY
  4. PHENERGAN [Concomitant]
     Active Substance: PROMETHAZINE HYDROCHLORIDE
     Indication: VOMITING
  5. VERAPAMIL [Concomitant]
     Active Substance: VERAPAMIL HYDROCHLORIDE
     Indication: MIGRAINE PROPHYLAXIS

REACTIONS (4)
  - Injection site injury [Recovered/Resolved]
  - Drug ineffective [Unknown]
  - Wrong technique in product usage process [Recovered/Resolved]
  - Device malfunction [Recovered/Resolved]

NARRATIVE: CASE EVENT DATE: 20160924
